FAERS Safety Report 15627268 (Version 1)
Quarter: 2018Q4

REPORT INFORMATION
  Report Type: Spontaneous
  Country: FR (occurrence: FR)
  Receive Date: 20181116
  Receipt Date: 20181116
  Transmission Date: 20190205
  Serious: Yes (Other)
  Sender: FDA-Public Use
  Company Number: FR-PFIZER INC-2018464547

PATIENT
  Age: 52 Year
  Sex: Female
  Weight: 48 kg

DRUGS (1)
  1. ATRACURIUM BESILATE [Suspect]
     Active Substance: ATRACURIUM BESYLATE
     Dosage: 1 DF, UNK
     Route: 042
     Dates: start: 20180921, end: 20180921

REACTIONS (2)
  - Product administration error [Recovered/Resolved]
  - Recurrence of neuromuscular blockade [Recovered/Resolved]

NARRATIVE: CASE EVENT DATE: 20180921
